FAERS Safety Report 4459763-1 (Version None)
Quarter: 2004Q3

REPORT INFORMATION
  Report Type: 
  Country: None (occurrence: None)
  Receive Date: 20040928
  Receipt Date: 20040130
  Transmission Date: 20050211
  Serious: No
  Sender: FDA-Public Use
  Company Number: US-BRISTOL-MYERS SQUIBB COMPANY-12492682

PATIENT
  Age: 40 Year
  Sex: Female
  Weight: 86 kg

DRUGS (4)
  1. KENALOG-40 [Suspect]
     Indication: SACROILIITIS
     Route: 030
     Dates: start: 20040107, end: 20040107
  2. MERIDIA [Concomitant]
  3. DARVOCET [Concomitant]
  4. DARVON [Concomitant]
     Indication: PAIN
     Dates: start: 20031230

REACTIONS (1)
  - MENSTRUATION IRREGULAR [None]
